FAERS Safety Report 5605741-6 (Version None)
Quarter: 2008Q1

REPORT INFORMATION
  Report Type: 
  Country: None (occurrence: None)
  Receive Date: 20080123
  Receipt Date: 20080116
  Transmission Date: 20080703
  Serious: Yes (Hospitalization, Disabling)
  Sender: FDA-Public Use
  Company Number: 2007US001769

PATIENT
  Age: 59 Year
  Sex: Male
  Weight: 118 kg

DRUGS (10)
  1. AMBISOME [Suspect]
     Indication: DRUG USE FOR UNKNOWN INDICATION
     Dosage: 30 MG, UID/QD, IV DRIP
     Route: 041
     Dates: start: 20070617, end: 20070619
  2. IDARUBICIN HCL [Suspect]
     Indication: ACUTE MYELOID LEUKAEMIA
     Dosage: 18 MG, UID/QD, IV DRIP, 150 MG, IV DRIP
     Route: 041
     Dates: start: 20070607, end: 20070609
  3. IDARUBICIN HCL [Suspect]
     Indication: ACUTE MYELOID LEUKAEMIA
     Dosage: 18 MG, UID/QD, IV DRIP, 150 MG, IV DRIP
     Route: 041
     Dates: start: 20070607, end: 20070613
  4. ETOPOSIDE [Suspect]
     Indication: ACUTE MYELOID LEUKAEMIA
     Dosage: 150 MG, UID/QD, IV DRIP
     Route: 041
     Dates: start: 20070607, end: 20070613
  5. CYTARABINE [Suspect]
     Indication: ACUTE MYELOID LEUKAEMIA
     Dosage: 12 G, UID/QD, IV DRIP, 7 MG, IV DRIP
     Route: 041
     Dates: start: 20070607, end: 20070613
  6. CYTARABINE [Suspect]
     Indication: ACUTE MYELOID LEUKAEMIA
     Dosage: 12 G, UID/QD, IV DRIP, 7 MG, IV DRIP
     Route: 041
     Dates: start: 20070604, end: 20070616
  7. VANCOMYCIN HYDROCHLORIDE [Suspect]
     Indication: DRUG USE FOR UNKNOWN INDICATION
     Dosage: 1 G, BID, IV DRIP
     Route: 041
     Dates: start: 20070616, end: 20070621
  8. MEROPENEM(MEROPENEM) [Suspect]
     Indication: DRUG USE FOR UNKNOWN INDICATION
     Dosage: 500 MG, TID, IV DRIP
     Route: 041
     Dates: start: 20070617, end: 20070620
  9. AZITHROMYCIN [Concomitant]
  10. CIPROFLOXACIN HYDROCHLORIDE [Concomitant]

REACTIONS (8)
  - BILIARY TRACT DISORDER [None]
  - DRUG TOXICITY [None]
  - HEPATIC ENCEPHALOPATHY [None]
  - HEPATITIS ACUTE [None]
  - HEPATORENAL FAILURE [None]
  - INJURY [None]
  - NEPHRITIS INTERSTITIAL [None]
  - SEPSIS [None]
